FAERS Safety Report 15953691 (Version 2)
Quarter: 2019Q1

REPORT INFORMATION
  Report Type: Spontaneous
  Country: PL (occurrence: PL)
  Receive Date: 20190213
  Receipt Date: 20190227
  Transmission Date: 20190417
  Serious: Yes (Hospitalization)
  Sender: FDA-Public Use
  Company Number: PL-ROCHE-2263870

PATIENT
  Age: 27 Year
  Sex: Male
  Weight: 76 kg

DRUGS (13)
  1. SIROLIMUS. [Suspect]
     Active Substance: SIROLIMUS
     Indication: PRODUCT USED FOR UNKNOWN INDICATION
     Route: 065
     Dates: start: 20181113
  2. METHYLPREDNISOLONE. [Suspect]
     Active Substance: METHYLPREDNISOLONE
     Dosage: EVERYDAY QOD (EVERY OTHER DAY)
     Route: 065
     Dates: start: 20181227, end: 20190102
  3. FOSCAVIR [Suspect]
     Active Substance: FOSCARNET SODIUM
     Indication: PRODUCT USED FOR UNKNOWN INDICATION
     Route: 042
     Dates: start: 20181231
  4. METHYLPREDNISOLONE. [Suspect]
     Active Substance: METHYLPREDNISOLONE
     Indication: ACUTE GRAFT VERSUS HOST DISEASE
     Dosage: EVERYDAY ON 02/DEC/2018 LAST DOSERECEIVED PRIOR TO SAE ONSET
     Route: 042
     Dates: start: 20181124, end: 20181226
  5. ACYCLOVIR. [Concomitant]
     Active Substance: ACYCLOVIR
     Route: 065
     Dates: start: 20181127
  6. CIDOFOVIR. [Concomitant]
     Active Substance: CIDOFOVIR
     Dosage: 5 MG/KG (TOTAL DOSE 375 MG)
     Route: 042
     Dates: start: 20190115
  7. VALGANCICLOVIR. [Suspect]
     Active Substance: VALGANCICLOVIR
     Indication: EPSTEIN-BARR VIRUS INFECTION
     Route: 065
  8. ITACITINIB [Suspect]
     Active Substance: ITACITINIB
     Route: 065
     Dates: start: 20181231
  9. SULFAMETHOXAZOLE/TRIMETHOPRIM [Concomitant]
     Active Substance: SULFAMETHOXAZOLE\TRIMETHOPRIM
     Route: 065
  10. GANCICLOVIR. [Suspect]
     Active Substance: GANCICLOVIR
     Indication: ACUTE GRAFT VERSUS HOST DISEASE
     Route: 042
     Dates: start: 20181126, end: 20181230
  11. GANCICLOVIR. [Suspect]
     Active Substance: GANCICLOVIR
     Route: 042
     Dates: start: 20181211
  12. VORICONAZOLE. [Concomitant]
     Active Substance: VORICONAZOLE
     Route: 065
     Dates: start: 20181127
  13. ITACITINIB [Suspect]
     Active Substance: ITACITINIB
     Indication: ACUTE GRAFT VERSUS HOST DISEASE
     Dosage: EVERY DAY?ON 2/DEC/2018 LAST DOSERECEIVED PRIOR TO SAE ONSET
     Route: 065
     Dates: start: 20181126

REACTIONS (4)
  - Epstein-Barr virus infection [Recovered/Resolved]
  - Cytomegalovirus infection [Recovering/Resolving]
  - Pancytopenia [Recovering/Resolving]
  - Drug resistance [Unknown]

NARRATIVE: CASE EVENT DATE: 20181203
